FAERS Safety Report 20808775 (Version 1)
Quarter: 2022Q2

REPORT INFORMATION
  Report Type: Spontaneous
  Country: US (occurrence: US)
  Receive Date: 20220510
  Receipt Date: 20220510
  Transmission Date: 20220720
  Serious: No
  Sender: FDA-Public Use
  Company Number: US-PFIZER INC-202200661422

PATIENT
  Age: 42 Year
  Sex: Female
  Weight: 70.31 kg

DRUGS (1)
  1. PAXLOVID [Suspect]
     Active Substance: NIRMATRELVIR\RITONAVIR
     Indication: COVID-19 treatment
     Dosage: PF-07321332 300 MG/RITONAVIR 100 MG; 2X/DAY, THREE PILLS IN MORNING AND THREE PILLS AT NIGHT
     Dates: start: 20220502

REACTIONS (3)
  - Faeces discoloured [Recovered/Resolved]
  - Abdominal pain [Recovered/Resolved]
  - Hot flush [Not Recovered/Not Resolved]

NARRATIVE: CASE EVENT DATE: 20220502
